FAERS Safety Report 25859296 (Version 4)
Quarter: 2025Q4

REPORT INFORMATION
  Report Type: Report from Study
  Country: CA (occurrence: CA)
  Receive Date: 20250929
  Receipt Date: 20251105
  Transmission Date: 20260117
  Serious: Yes (Hospitalization)
  Sender: ABBVIE
  Company Number: CA-ABBVIE-6452557

PATIENT
  Age: 19 Year
  Sex: Male

DRUGS (2)
  1. SKYRIZI [Suspect]
     Active Substance: RISANKIZUMAB-RZAA
     Indication: Crohn^s disease
     Route: 058
     Dates: start: 2025
  2. SKYRIZI [Suspect]
     Active Substance: RISANKIZUMAB-RZAA
     Indication: Crohn^s disease
     Dosage: WEEK 8?LAST ADMIN DATE 2025
     Route: 042
     Dates: start: 20250715

REACTIONS (1)
  - Abscess [Unknown]

NARRATIVE: CASE EVENT DATE: 20250101
